FAERS Safety Report 19000322 (Version 1)
Quarter: 2021Q1

REPORT INFORMATION
  Report Type: Report from Study
  Country: None (occurrence: FR)
  Receive Date: 20210312
  Receipt Date: 20210312
  Transmission Date: 20210420
  Serious: Yes (Hospitalization)
  Sender: FDA-Public Use
  Company Number: FR-BIOVITRUM-2021FR2475

PATIENT
  Age: 54 Year
  Sex: Male

DRUGS (1)
  1. KINERET [Suspect]
     Active Substance: ANAKINRA
     Indication: COVID-19
     Dates: start: 20200415

REACTIONS (1)
  - Pneumonia staphylococcal [Recovered/Resolved]

NARRATIVE: CASE EVENT DATE: 20200424
